FAERS Safety Report 7934334-0 (Version None)
Quarter: 2011Q4

REPORT INFORMATION
  Report Type: 
  Country: None (occurrence: None)
  Receive Date: 20111122
  Receipt Date: 20111111
  Transmission Date: 20120403
  Serious: Yes (Hospitalization)
  Sender: FDA-Public Use
  Company Number: US-GLAXOSMITHKLINE-A0871788A

PATIENT
  Age: 56 Year
  Sex: Male
  Weight: 90 kg

DRUGS (8)
  1. STARLIX [Concomitant]
  2. LEVOTHYROXINE SODIUM [Concomitant]
  3. CLONIDINE [Concomitant]
  4. AVANDIA [Suspect]
     Indication: DIABETES MELLITUS
     Dosage: 8MG PER DAY
     Route: 048
     Dates: start: 20011002, end: 20051201
  5. LISINOPRIL [Concomitant]
  6. INSULIN [Concomitant]
  7. ATENOLOL [Concomitant]
  8. GLYBURIDE [Concomitant]

REACTIONS (4)
  - CARDIAC FAILURE CONGESTIVE [None]
  - ISCHAEMIC CARDIOMYOPATHY [None]
  - CORONARY ARTERY DISEASE [None]
  - MYOCARDIAL INFARCTION [None]
